FAERS Safety Report 25764305 (Version 1)
Quarter: 2025Q3

REPORT INFORMATION
  Report Type: Spontaneous
  Country: US (occurrence: US)
  Receive Date: 20250905
  Receipt Date: 20250905
  Transmission Date: 20251020
  Serious: No
  Sender: DOMPE FARMACEUTICI
  Company Number: US-FARMAPROD-202412-4231

PATIENT
  Sex: Female

DRUGS (11)
  1. OXERVATE [Suspect]
     Active Substance: CENEGERMIN-BKBJ
     Indication: Neurotrophic keratopathy
     Route: 047
     Dates: start: 20241111
  2. CYCLOSPORINE [Concomitant]
     Active Substance: CYCLOSPORINE
  3. GEMTESA [Concomitant]
     Active Substance: VIBEGRON
  4. MIRTAZAPINE [Concomitant]
     Active Substance: MIRTAZAPINE
  5. ERYTHROMYCIN [Concomitant]
     Active Substance: ERYTHROMYCIN
  6. SPIRONOLACTONE [Concomitant]
     Active Substance: SPIRONOLACTONE
  7. ATORVASTATIN CALCIUM [Concomitant]
     Active Substance: ATORVASTATIN CALCIUM
  8. BIOTIN [Concomitant]
     Active Substance: BIOTIN
  9. MEGARED ADVANCED 4-IN-1 [Concomitant]
  10. CALCIUM\CHOLECALCIFEROL [Concomitant]
     Active Substance: CALCIUM\CHOLECALCIFEROL
  11. FUROSEMIDE [Concomitant]
     Active Substance: FUROSEMIDE

REACTIONS (1)
  - Eye pain [Unknown]
